FAERS Safety Report 8809833 (Version 1)
Quarter: 2012Q4

REPORT INFORMATION
  Report Type: 
  Country: DK (occurrence: DK)
  Receive Date: 20120926
  Receipt Date: 20120926
  Transmission Date: 20130627
  Serious: Yes (Death)
  Sender: FDA-Public Use
  Company Number: DK-ROCHE-1133446

PATIENT

DRUGS (1)
  1. ALTEPLASE [Suspect]
     Indication: ISCHAEMIC STROKE
     Route: 042

REACTIONS (1)
  - Death [Fatal]
